FAERS Safety Report 11856275 (Version 1)
Quarter: 2015Q4

REPORT INFORMATION
  Report Type: Spontaneous
  Country: IT (occurrence: IT)
  Receive Date: 20151221
  Receipt Date: 20151221
  Transmission Date: 20160305
  Serious: Yes (Hospitalization)
  Sender: FDA-Public Use
  Company Number: IT-SA-2015SA212737

PATIENT
  Sex: Female

DRUGS (6)
  1. URBASON [Concomitant]
     Active Substance: METHYLPREDNISOLONE
  2. EUTIROX [Concomitant]
     Active Substance: LEVOTHYROXINE SODIUM
     Route: 048
  3. METHOTREXATE [Concomitant]
     Active Substance: METHOTREXATE
  4. COMBISARTAN [Suspect]
     Active Substance: HYDROCHLOROTHIAZIDE\LOSARTAN POTASSIUM
     Indication: HYPERTENSION
     Dosage: 160/12.5 MG TABLET DOSE:1 UNIT(S)
     Route: 048
     Dates: start: 20150101
  5. LASIX [Suspect]
     Active Substance: FUROSEMIDE
     Dosage: DOSE:1 UNIT(S)
     Route: 048
     Dates: start: 20150828, end: 20150901
  6. TENORMIN [Concomitant]
     Active Substance: ATENOLOL

REACTIONS (2)
  - Hypokalaemia [Recovered/Resolved]
  - Asthenia [Recovered/Resolved]

NARRATIVE: CASE EVENT DATE: 20150828
